FAERS Safety Report 24168624 (Version 2)
Quarter: 2024Q3

REPORT INFORMATION
  Report Type: Spontaneous
  Country: TW (occurrence: TW)
  Receive Date: 20240802
  Receipt Date: 20240808
  Transmission Date: 20241017
  Serious: No
  Sender: MERCK
  Company Number: TW-009507513-2407TWN012665

PATIENT
  Age: 58 Year
  Sex: Female
  Weight: 47 kg

DRUGS (4)
  1. BRIDION [Suspect]
     Active Substance: SUGAMMADEX
     Indication: Open reduction of fracture
     Dosage: 100 MILLIGRAM, ONCE
  2. GLYCOPYRROLATE\NEOSTIGMINE [Suspect]
     Active Substance: GLYCOPYRROLATE\NEOSTIGMINE
     Indication: Open reduction of fracture
     Dosage: NEOSTIGMINE 1MG/ GLYCOPYRODYN 0.2MG
  3. ATROPINE [Suspect]
     Active Substance: ATROPINE
     Indication: Open reduction of fracture
     Dosage: NEOSTIGMINE 1MG/ ATROPINE 1MG
  4. NEOSTIGMINE [Suspect]
     Active Substance: NEOSTIGMINE

REACTIONS (1)
  - Bradycardia [Unknown]
